FAERS Safety Report 4457469-6 (Version None)
Quarter: 2004Q3

REPORT INFORMATION
  Report Type: 
  Country: None (occurrence: None)
  Receive Date: 20040921
  Receipt Date: 20040913
  Transmission Date: 20050211
  Serious: Yes (Other)
  Sender: FDA-Public Use
  Company Number: A0525449A

PATIENT
  Sex: 0

DRUGS (1)
  1. ADVAIR DISKUS 100/50 [Suspect]
     Indication: ASTHMA
     Dosage: INHALED
     Route: 055

REACTIONS (3)
  - ATROPHY [None]
  - HOARSENESS [None]
  - LARYNGEAL DISORDER [None]
